FAERS Safety Report 9346563 (Version 1)
Quarter: 2013Q2

REPORT INFORMATION
  Report Type: Spontaneous
  Country: US (occurrence: US)
  Receive Date: 20130613
  Receipt Date: 20130613
  Transmission Date: 20140414
  Serious: Yes (Hospitalization)
  Sender: FDA-Public Use
  Company Number: US-BAYER-2013-070908

PATIENT
  Age: 27 Year
  Sex: Female

DRUGS (14)
  1. YASMIN [Suspect]
  2. OCELLA [Suspect]
  3. EXCEDRIN MIGRAINE [Concomitant]
  4. ZIRTEC [Concomitant]
  5. AMOXICILLIN [Concomitant]
     Dosage: 875 MG, UNK
  6. PEPCID [Concomitant]
  7. PROZAC [Concomitant]
  8. METHADONE [Concomitant]
  9. REGLAN [Concomitant]
  10. METRONIDAZOLE [Concomitant]
  11. ZOFRAN [Concomitant]
  12. PROPRANOLOL [Concomitant]
  13. DILAUDID [Concomitant]
  14. ATIVAN [Concomitant]

REACTIONS (1)
  - Deep vein thrombosis [Recovered/Resolved]
